FAERS Safety Report 7487657-6 (Version None)
Quarter: 2011Q2

REPORT INFORMATION
  Report Type: 
  Country: None (occurrence: None)
  Receive Date: 20110518
  Receipt Date: 20091122
  Transmission Date: 20111010
  Serious: Yes (Death, Other)
  Sender: FDA-Public Use
  Company Number: US-BAYER-200940541NA

PATIENT
  Age: 60 Year
  Sex: Female
  Weight: 59 kg

DRUGS (12)
  1. PLAQUENIL [Concomitant]
     Dosage: 200 MG, QD
     Route: 048
  2. PREDNISONE [Concomitant]
     Dosage: 10 MG, BID
     Route: 048
  3. IMURAN [Concomitant]
     Dosage: 50 MG, BID
     Route: 048
  4. DOPAMINE HCL [Concomitant]
     Dosage: 400MG/10 ML PER HOUR
     Route: 042
  5. VANCOMYCIN [Concomitant]
     Dosage: 1000 MG, UNK
     Route: 042
  6. HEPARIN [Concomitant]
     Dosage: 2000 UNITS
     Route: 042
  7. TOPROL-XL [Concomitant]
     Dosage: 25 MG, QD
     Route: 048
  8. HEPARIN [Concomitant]
     Dosage: 1000 U, UNK
     Route: 042
  9. TRASYLOL [Suspect]
     Indication: CORONARY ARTERY BYPASS
     Route: 042
     Dates: start: 20071207
  10. DAYPRO [Concomitant]
     Dosage: 600 MG, BID
     Route: 048
  11. DOXEPIN [Concomitant]
     Dosage: 25 MG/AT BEDTIME
     Route: 048
  12. NITROGLYCERIN [Concomitant]
     Dosage: 50 MG/10 ML PER HOUR
     Route: 042

REACTIONS (14)
  - INJURY [None]
  - PSYCHIATRIC SYMPTOM [None]
  - RENAL INJURY [None]
  - MULTI-ORGAN FAILURE [None]
  - EMOTIONAL DISTRESS [None]
  - PAIN [None]
  - DEATH [None]
  - RENAL IMPAIRMENT [None]
  - STRESS [None]
  - ANXIETY [None]
  - FEAR [None]
  - ANHEDONIA [None]
  - UNEVALUABLE EVENT [None]
  - RENAL FAILURE [None]
